FAERS Safety Report 7765873-3 (Version None)
Quarter: 2011Q3

REPORT INFORMATION
  Report Type: 
  Country: None (occurrence: None)
  Receive Date: 20110921
  Receipt Date: 20110908
  Transmission Date: 20111222
  Serious: No
  Sender: FDA-Public Use
  Company Number: US-ELI_LILLY_AND_COMPANY-US201109003161

PATIENT
  Age: 54 Year
  Sex: Female

DRUGS (6)
  1. SIMVASTATIN [Concomitant]
  2. ANTIHYPERTENSIVES [Concomitant]
     Indication: HYPERTENSION
  3. CYMBALTA [Suspect]
     Indication: DEPRESSION
     Dosage: 60 MG, QD
     Dates: start: 20080501, end: 20110630
  4. METFORMIN HCL [Concomitant]
  5. DRUG USED IN DIABETES [Concomitant]
     Indication: DIABETES MELLITUS
  6. DIOVAN [Concomitant]

REACTIONS (11)
  - MEMORY IMPAIRMENT [None]
  - PALPITATIONS [None]
  - HYPERTENSION [None]
  - TINNITUS [None]
  - DRUG WITHDRAWAL SYNDROME [None]
  - PAIN [None]
  - MOOD ALTERED [None]
  - THINKING ABNORMAL [None]
  - HEPATIC ENZYME INCREASED [None]
  - ANXIETY [None]
  - CARPAL TUNNEL DECOMPRESSION [None]
